FAERS Safety Report 5729549-6 (Version None)
Quarter: 2008Q2

REPORT INFORMATION
  Report Type: 
  Country: None (occurrence: None)
  Receive Date: 20080501
  Receipt Date: 20080423
  Transmission Date: 20081010
  Serious: Yes (Hospitalization)
  Sender: FDA-Public Use
  Company Number: 2008010460

PATIENT
  Age: 43 Year
  Sex: Female

DRUGS (5)
  1. PSEUDOEPHEDRINE HCL [Suspect]
     Indication: NASOPHARYNGITIS
     Dosage: 60 MG, ORAL
     Route: 048
     Dates: start: 20070101
  2. TIAPROFENIC ACID (TIAPROFENIC ACID) [Concomitant]
  3. ASPIRIN [Concomitant]
  4. ASCORBIC ACID [Concomitant]
  5. CEFIXIME CHEWABLE [Concomitant]

REACTIONS (2)
  - ANAPHYLACTIC REACTION [None]
  - SKIN TEST POSITIVE [None]
